FAERS Safety Report 4425492-3 (Version None)
Quarter: 2004Q3

REPORT INFORMATION
  Report Type: 
  Country: None (occurrence: None)
  Receive Date: 20040810
  Receipt Date: 20040728
  Transmission Date: 20050211
  Serious: Yes (Hospitalization)
  Sender: FDA-Public Use
  Company Number: 2004052371

PATIENT
  Age: 77 Year
  Sex: Female
  Weight: 81.6475 kg

DRUGS (19)
  1. NEURONTIN [Suspect]
     Indication: BACK PAIN
     Dosage: 600 MG (300 MG, 2 IN 1 D), ORAL
     Route: 048
     Dates: start: 20040411, end: 20040622
  2. FUROSEMIDE [Concomitant]
  3. METOPROLOL SUCCINATE [Concomitant]
  4. QUINAPRIL HCL [Concomitant]
  5. DIGOXIN [Concomitant]
  6. LEVOTHYROXINE SODIUM [Concomitant]
  7. SIMVASTATIN [Concomitant]
  8. CLOPIDOGREL BISULFATE [Concomitant]
  9. DICLOFENAC SODIUM [Concomitant]
  10. ESTROGENS ESTERIFIED (ESTROGENS ESTERIFIED) [Concomitant]
  11. ASPIRIN [Concomitant]
  12. FISH OIL (FISH OIL) [Concomitant]
  13. GENERAL NUTRIENTS (GENERAL NUTRIENTS) [Concomitant]
  14. ALL OTHER THERAPEUTIC PRODUCTS (ALL OTHER THERAPEUTIC PRODUCTS) [Concomitant]
  15. CALCIUM CITRATE (CALCIUM CITRATE) [Concomitant]
  16. MULTIVITAMINS (ASCORBIC ACID, ERGOCALCIFEROL, FOLIC ACID, NICOTINAMIDE [Concomitant]
  17. VITAMIN B (VITAMIN B) [Concomitant]
  18. ASCORBIC ACID [Concomitant]
  19. MAGNESIUM (MAGNESIUM) [Concomitant]

REACTIONS (6)
  - BLOOD MAGNESIUM DECREASED [None]
  - BLOOD PRESSURE INCREASED [None]
  - DEHYDRATION [None]
  - FEELING ABNORMAL [None]
  - FLUSHING [None]
  - OEDEMA PERIPHERAL [None]
